FAERS Safety Report 14012159 (Version 2)
Quarter: 2017Q4

REPORT INFORMATION
  Report Type: Report from Study
  Country: CA (occurrence: CA)
  Receive Date: 20170926
  Receipt Date: 20171110
  Transmission Date: 20180321
  Serious: Yes (Other)
  Sender: FDA-Public Use
  Company Number: CA-JNJFOC-20170924875

PATIENT
  Age: 47 Year
  Sex: Male

DRUGS (1)
  1. REMICADE [Suspect]
     Active Substance: INFLIXIMAB
     Indication: CROHN^S DISEASE
     Dosage: STRENGTH = 100 MG
     Route: 042
     Dates: start: 20160420

REACTIONS (3)
  - Product use issue [Unknown]
  - Intestinal stenosis [Unknown]
  - Off label use [Unknown]

NARRATIVE: CASE EVENT DATE: 20160420
